FAERS Safety Report 6333256-9 (Version None)
Quarter: 2009Q3

REPORT INFORMATION
  Report Type: 
  Country: None (occurrence: None)
  Receive Date: 20090828
  Receipt Date: 20090817
  Transmission Date: 20100115
  Serious: Yes (Other)
  Sender: FDA-Public Use
  Company Number: US-PFIZER INC-2009255610

PATIENT
  Sex: Female
  Weight: 70.295 kg

DRUGS (16)
  1. CHANTIX [Suspect]
     Indication: SMOKING CESSATION THERAPY
     Dosage: 0.5 MG, 1X/DAY
     Route: 048
     Dates: start: 20090813
  2. LASIX [Concomitant]
  3. CLARINEX [Concomitant]
  4. NASONEX [Concomitant]
  5. FERROUS SULFATE TAB [Concomitant]
  6. ULTRACET [Concomitant]
  7. VITAMIN B-12 [Concomitant]
  8. CALCIUM WITH VITAMIN D [Concomitant]
  9. FLEXERIL [Concomitant]
  10. BUPROPION HCL XL [Concomitant]
  11. KLOR-CON [Concomitant]
  12. RANITIDINE [Concomitant]
  13. FORTICOL [Concomitant]
  14. VITAMINS [Concomitant]
     Route: 048
  15. BISACODYL [Concomitant]
  16. ARTHROTEC [Concomitant]
     Indication: OSTEOARTHRITIS
     Dosage: FREQUENCY: 4X/DAY,

REACTIONS (2)
  - BIPOLAR DISORDER [None]
  - MANIA [None]
